FAERS Safety Report 19004351 (Version 3)
Quarter: 2021Q2

REPORT INFORMATION
  Report Type: Other
  Country: AR (occurrence: AR)
  Receive Date: 20210312
  Receipt Date: 20210608
  Transmission Date: 20210717
  Serious: Yes (Hospitalization, Other)
  Sender: FDA-Public Use
  Company Number: AR-ROCHE-1435250

PATIENT
  Age: 10 Year
  Sex: Female

DRUGS (6)
  1. XOLAIR [Suspect]
     Active Substance: OMALIZUMAB
     Indication: ASTHMA
     Dosage: 150 MG, QMO (1 AMPOULE OF 150 MG MONTHLY)
     Route: 058
     Dates: start: 20130101, end: 20130113
  2. XOLAIR [Suspect]
     Active Substance: OMALIZUMAB
     Dosage: 1 DF, QMO
     Route: 058
     Dates: start: 20150306
  3. FLUTICASONE. [Concomitant]
     Active Substance: FLUTICASONE
     Indication: PRODUCT USED FOR UNKNOWN INDICATION
     Route: 065
  4. XOLAIR [Suspect]
     Active Substance: OMALIZUMAB
     Dosage: 1 DF, QMO
     Route: 058
     Dates: start: 201401
  5. MONTELUKAST [Concomitant]
     Active Substance: MONTELUKAST SODIUM
     Indication: PRODUCT USED FOR UNKNOWN INDICATION
     Dosage: 5 MG, QD
     Route: 065
  6. SALMETEROL [Concomitant]
     Active Substance: SALMETEROL
     Indication: PRODUCT USED FOR UNKNOWN INDICATION
     Route: 065

REACTIONS (20)
  - Inappropriate schedule of product administration [Unknown]
  - Viral infection [Recovering/Resolving]
  - Pneumonia [Recovered/Resolved]
  - Bronchial secretion retention [Unknown]
  - Oxygen saturation decreased [Recovered/Resolved]
  - Respiratory tract congestion [Recovering/Resolving]
  - Hypersensitivity [Unknown]
  - Hypersensitivity [Recovered/Resolved]
  - Chest pain [Recovered/Resolved]
  - Rhinorrhoea [Unknown]
  - Throat tightness [Unknown]
  - Asthmatic crisis [Recovered/Resolved]
  - Hypersensitivity [Recovering/Resolving]
  - Asthma [Unknown]
  - Nasopharyngitis [Recovering/Resolving]
  - Sneezing [Unknown]
  - Asthmatic crisis [Recovered/Resolved]
  - Hypoxia [Unknown]
  - Bronchospasm [Recovered/Resolved]
  - Allergy to chemicals [Unknown]

NARRATIVE: CASE EVENT DATE: 201406
